FAERS Safety Report 11837000 (Version 1)
Quarter: 2015Q4

REPORT INFORMATION
  Report Type: Spontaneous
  Country: US (occurrence: None)
  Receive Date: 20151214
  Receipt Date: 20151214
  Transmission Date: 20160305
  Serious: No
  Sender: FDA-Public Use
  Company Number: None

PATIENT
  Age: 52 Year
  Sex: Female

DRUGS (1)
  1. MYCOPHENOLATE 500MG ROXANE [Suspect]
     Active Substance: MYCOPHENOLATE MOFETIL
     Indication: DERMATOMYOSITIS
     Dosage: 500MG TAPERING 1X1 WEEK, 1BID X1
     Route: 048
     Dates: start: 20151120, end: 20151130

REACTIONS (4)
  - Nausea [None]
  - Diarrhoea [None]
  - Rash [None]
  - Blister [None]

NARRATIVE: CASE EVENT DATE: 20151120
